FAERS Safety Report 17464734 (Version 2)
Quarter: 2020Q1

REPORT INFORMATION
  Report Type: Spontaneous
  Country: FR (occurrence: FR)
  Receive Date: 20200226
  Receipt Date: 20200318
  Transmission Date: 20200409
  Serious: Yes (Hospitalization, Other)
  Sender: FDA-Public Use
  Company Number: NVSC2020FR052769

PATIENT

DRUGS (7)
  1. IBUPROFEN. [Suspect]
     Active Substance: IBUPROFEN
     Indication: PRODUCT USED FOR UNKNOWN INDICATION
     Dosage: UNK
     Route: 065
  2. DOLUTEGRAVIR [Interacting]
     Active Substance: DOLUTEGRAVIR
     Dosage: UNK (50/25 MG, DAILY)
     Route: 065
  3. RILPIVIRINE [Suspect]
     Active Substance: RILPIVIRINE
     Indication: HIV INFECTION
     Dosage: 25 MG, QD
     Route: 065
  4. METFORMIN [Suspect]
     Active Substance: METFORMIN HYDROCHLORIDE
     Indication: TYPE 2 DIABETES MELLITUS
     Dosage: 1000 MG, BID (MORNING AND EVENING)
     Route: 065
  5. DOLUTEGRAVIR [Interacting]
     Active Substance: DOLUTEGRAVIR
     Indication: HIV INFECTION
     Dosage: UNK (50 MG, DAILY)
     Route: 065
  6. RILPIVIRINE [Suspect]
     Active Substance: RILPIVIRINE
     Dosage: 50/25 MG, DAILY
     Route: 065
  7. METFORMIN [Interacting]
     Active Substance: METFORMIN HYDROCHLORIDE
     Dosage: 1000 MG, QD
     Route: 065

REACTIONS (6)
  - Acute kidney injury [Unknown]
  - Glomerular filtration rate decreased [Unknown]
  - Abdominal pain [Unknown]
  - Lactic acidosis [Unknown]
  - Drug interaction [Unknown]
  - Vomiting [Unknown]
